FAERS Safety Report 4960699-8 (Version None)
Quarter: 2006Q2

REPORT INFORMATION
  Report Type: 
  Country: None (occurrence: None)
  Receive Date: 20060403
  Receipt Date: 20051005
  Transmission Date: 20061013
  Serious: Yes (Hospitalization, Other)
  Sender: FDA-Public Use
  Company Number: US-MERCK-0603USA03956

PATIENT
  Age: 60 Year
  Sex: Male
  Weight: 130 kg

DRUGS (8)
  1. VIOXX [Suspect]
     Indication: ARTHRITIS
     Route: 048
     Dates: start: 20010303, end: 20020401
  2. ALLOPURINOL MSD [Concomitant]
     Route: 065
  3. COZAAR [Concomitant]
     Route: 065
  4. HYTRIN [Concomitant]
     Route: 065
  5. DIOVAN [Concomitant]
     Route: 065
  6. ULTRAM [Concomitant]
     Route: 065
  7. ADALAT [Concomitant]
     Route: 065
  8. ZANTAC [Concomitant]
     Route: 065

REACTIONS (11)
  - ANAEMIA [None]
  - ANXIETY [None]
  - CARDIOVASCULAR DISORDER [None]
  - CORONARY ARTERY OCCLUSION [None]
  - DUODENITIS [None]
  - DYSPNOEA [None]
  - GASTRITIS [None]
  - GASTRITIS EROSIVE [None]
  - GASTROOESOPHAGEAL REFLUX DISEASE [None]
  - MYOCARDIAL INFARCTION [None]
  - OSTEOARTHRITIS [None]
